FAERS Safety Report 7375780-6 (Version None)
Quarter: 2011Q1

REPORT INFORMATION
  Report Type: 
  Country: None (occurrence: None)
  Receive Date: 20110325
  Receipt Date: 20110316
  Transmission Date: 20110831
  Serious: Yes (Hospitalization)
  Sender: FDA-Public Use
  Company Number: A0718700A

PATIENT
  Age: 51 Year
  Sex: Female
  Weight: 136.4 kg

DRUGS (10)
  1. HUMALOG [Concomitant]
     Dates: start: 20060920, end: 20061201
  2. ELAVIL [Concomitant]
  3. INSULIN [Concomitant]
     Dates: start: 20000731
  4. AVANDAMET [Suspect]
     Route: 048
     Dates: start: 20000425, end: 20070114
  5. AVANDIA [Suspect]
     Dosage: 8MG PER DAY
     Dates: start: 20000425, end: 20070114
  6. AMARYL [Concomitant]
     Dates: start: 19990706, end: 20070301
  7. DIABETA [Concomitant]
     Dates: start: 19990626, end: 20030101
  8. AVANDARYL [Suspect]
     Route: 048
     Dates: start: 20040611, end: 20070114
  9. ACTOS [Concomitant]
     Dates: start: 19991112, end: 20000401
  10. PRAVACHOL [Concomitant]

REACTIONS (3)
  - MYOCARDIAL INFARCTION [None]
  - CARDIAC FAILURE CONGESTIVE [None]
  - CORONARY ARTERY DISEASE [None]
